FAERS Safety Report 24183464 (Version 3)
Quarter: 2024Q3

REPORT INFORMATION
  Report Type: Spontaneous
  Country: US (occurrence: US)
  Receive Date: 20240807
  Receipt Date: 20240920
  Transmission Date: 20241017
  Serious: Yes (Life-Threatening, Hospitalization, Disabling, Other)
  Sender: PFIZER
  Company Number: US-PFIZER INC-202400230473

PATIENT
  Age: 21 Year
  Sex: Female
  Weight: 61.224 kg

DRUGS (9)
  1. DEPO-PROVERA [Suspect]
     Active Substance: MEDROXYPROGESTERONE ACETATE
     Indication: Polycystic ovarian syndrome
     Dosage: 150 MG/ML/ 1 INJECTION Q 3 MONTHS
     Route: 030
     Dates: start: 20240109, end: 20240805
  2. DEPO-PROVERA [Suspect]
     Active Substance: MEDROXYPROGESTERONE ACETATE
     Indication: Heavy menstrual bleeding
     Dosage: 150 MG
     Route: 030
     Dates: start: 20240109
  3. DEPO-PROVERA [Suspect]
     Active Substance: MEDROXYPROGESTERONE ACETATE
     Indication: Menstruation irregular
     Dosage: UNK
     Dates: start: 20240409, end: 2024
  4. DEPO-PROVERA [Suspect]
     Active Substance: MEDROXYPROGESTERONE ACETATE
     Indication: Contraception
  5. AZELAIC ACID [Concomitant]
     Active Substance: AZELAIC ACID
     Indication: Acne
     Dosage: UNK
  6. MIDODRINE [Concomitant]
     Active Substance: MIDODRINE
     Indication: Hypotension
     Dosage: UNK
  7. VITAMIN D3 [Concomitant]
     Active Substance: CHOLECALCIFEROL
     Indication: Urinary tract disorder
     Dosage: UNK
  8. SPIRONOLACTONE [Concomitant]
     Active Substance: SPIRONOLACTONE
     Indication: Acne
     Dosage: UNK
  9. TIZANIDINE [Concomitant]
     Active Substance: TIZANIDINE
     Dosage: UNK

REACTIONS (10)
  - Supraventricular tachycardia [Recovering/Resolving]
  - Respiration abnormal [Recovering/Resolving]
  - Adrenal insufficiency [Recovering/Resolving]
  - Mitral valve prolapse [Recovering/Resolving]
  - Adrenocortical insufficiency acute [Recovering/Resolving]
  - Depressed level of consciousness [Recovering/Resolving]
  - Arrhythmia [Recovering/Resolving]
  - Anxiety [Recovering/Resolving]
  - Panic disorder [Recovering/Resolving]
  - Dyspnoea [Recovering/Resolving]

NARRATIVE: CASE EVENT DATE: 20240101
